FAERS Safety Report 13110341 (Version 1)
Quarter: 2017Q1

REPORT INFORMATION
  Report Type: Spontaneous
  Country: US (occurrence: US)
  Receive Date: 20170112
  Receipt Date: 20170112
  Transmission Date: 20170428
  Serious: Yes (Other)
  Sender: FDA-Public Use
  Company Number: US-ROCHE-1099940

PATIENT
  Sex: Male

DRUGS (1)
  1. ACTIVASE [Suspect]
     Active Substance: ALTEPLASE
     Indication: ACUTE MYOCARDIAL INFARCTION
     Route: 065

REACTIONS (5)
  - Ventricular extrasystoles [Unknown]
  - Bradycardia [Unknown]
  - Hypotension [Unknown]
  - Gingival bleeding [Unknown]
  - Tongue haemorrhage [Unknown]
